FAERS Safety Report 26022766 (Version 1)
Quarter: 2025Q4

REPORT INFORMATION
  Report Type: Spontaneous
  Country: US (occurrence: US)
  Receive Date: 20251110
  Receipt Date: 20251110
  Transmission Date: 20260118
  Serious: Yes (Death, Other)
  Sender: INTRABIO
  Company Number: US-IBO-202500221

PATIENT
  Age: 64 Year
  Sex: Female
  Weight: 55 kg

DRUGS (1)
  1. AQNEURSA [Suspect]
     Active Substance: LEVACETYLLEUCINE
     Indication: Product used for unknown indication
     Dosage: TAKE 2 PACKETS IN THE MORNING, 1 PACKET IN THE AFTERNOON, AND 1 PACKET IN THE EVENING
     Route: 065
     Dates: start: 20250605

REACTIONS (1)
  - Death [Fatal]
